FAERS Safety Report 23291003 (Version 2)
Quarter: 2023Q4

REPORT INFORMATION
  Report Type: Spontaneous
  Country: JP (occurrence: JP)
  Receive Date: 20231213
  Receipt Date: 20231227
  Transmission Date: 20240110
  Serious: Yes (Hospitalization, Other)
  Sender: FDA-Public Use
  Company Number: JP-TAKEDA-2023TJP015805

PATIENT
  Sex: Female

DRUGS (1)
  1. CABOMETYX [Suspect]
     Active Substance: CABOZANTINIB S-MALATE
     Indication: Renal cell carcinoma
     Dosage: 40 MG, QD
     Route: 048
     Dates: start: 20231017, end: 20231125

REACTIONS (7)
  - Immune-mediated hypothyroidism [Unknown]
  - Nephrotic syndrome [Unknown]
  - Stomatitis [Unknown]
  - Nausea [Unknown]
  - Haematoma [Unknown]
  - Palmar-plantar erythrodysaesthesia syndrome [Unknown]
  - Intentional dose omission [Unknown]

NARRATIVE: CASE EVENT DATE: 20231124
